FAERS Safety Report 21824557 (Version 6)
Quarter: 2023Q2

REPORT INFORMATION
  Report Type: Spontaneous
  Country: US (occurrence: US)
  Receive Date: 20230105
  Receipt Date: 20230516
  Transmission Date: 20230721
  Serious: Yes (Death, Hospitalization)
  Sender: FDA-Public Use
  Company Number: US-KARYOPHARM-2022KPT001590

PATIENT

DRUGS (17)
  1. XPOVIO [Suspect]
     Active Substance: SELINEXOR
     Indication: Plasma cell myeloma
     Dosage: 80 MG, WEEKLY
     Route: 048
     Dates: start: 20221128, end: 20230504
  2. ACYCLOVIR ABBOTT VIAL [Concomitant]
  3. ALBUTEROL SULFATE [Concomitant]
     Active Substance: ALBUTEROL SULFATE
  4. DEXAMETHASONE [Concomitant]
     Active Substance: DEXAMETHASONE
  5. ACETAMINOPHEN\HYDROCODONE [Concomitant]
     Active Substance: ACETAMINOPHEN\HYDROCODONE
  6. FORMOTEROL [Concomitant]
     Active Substance: FORMOTEROL
  7. KYPROLIS [Concomitant]
     Active Substance: CARFILZOMIB
  8. LEVOTHYROXINE [Concomitant]
     Active Substance: LEVOTHYROXINE
  9. MEGESTROL [Concomitant]
     Active Substance: MEGESTROL
  10. MONTELUKAST [Concomitant]
     Active Substance: MONTELUKAST SODIUM
  11. ONDANSETRON [Concomitant]
     Active Substance: ONDANSETRON
  12. PROCHLORPERAZINE [Concomitant]
     Active Substance: PROCHLORPERAZINE
  13. ROSUVASTATIN [Concomitant]
     Active Substance: ROSUVASTATIN
  14. SERTRALINE [Concomitant]
     Active Substance: SERTRALINE HYDROCHLORIDE
  15. THEOPHYLLINE [Concomitant]
     Active Substance: THEOPHYLLINE
  16. TRAMADOL [Concomitant]
     Active Substance: TRAMADOL
  17. TRAZODONE [Concomitant]
     Active Substance: TRAZODONE HYDROCHLORIDE

REACTIONS (8)
  - Death [Fatal]
  - Urinary tract infection [Recovered/Resolved]
  - Renal disorder [Recovered/Resolved]
  - Asthenia [Not Recovered/Not Resolved]
  - Essential tremor [Unknown]
  - Fatigue [Unknown]
  - Nausea [Recovered/Resolved]
  - Diarrhoea [Recovered/Resolved]

NARRATIVE: CASE EVENT DATE: 20221101
